FAERS Safety Report 9100151 (Version 1)
Quarter: 2013Q1

REPORT INFORMATION
  Report Type: Spontaneous
  Country: FR (occurrence: FR)
  Receive Date: 20130215
  Receipt Date: 20130215
  Transmission Date: 20140127
  Serious: Yes (Hospitalization, Other)
  Sender: FDA-Public Use
  Company Number: FR-BRISTOL-MYERS SQUIBB COMPANY-17362138

PATIENT
  Age: 84 Year
  Sex: Male

DRUGS (14)
  1. COUMADINE [Suspect]
     Indication: CARDIAC VALVE DISEASE
     Dosage: 5MG TAB
     Route: 048
  2. LEVOTHYROX [Suspect]
     Route: 048
  3. CORDARONE [Suspect]
     Route: 048
  4. ATORVASTATIN [Suspect]
     Route: 048
  5. KARDEGIC [Suspect]
  6. FUROSEMIDE [Concomitant]
  7. CARDENSIEL [Concomitant]
  8. AMLODIPINE [Concomitant]
  9. NOVOMIX [Concomitant]
  10. LEVOCETIRIZINE [Concomitant]
  11. MACROGOL [Concomitant]
  12. LYRICA [Concomitant]
  13. IXPRIM [Concomitant]
  14. LANSOPRAZOLE [Concomitant]

REACTIONS (4)
  - Normochromic normocytic anaemia [Not Recovered/Not Resolved]
  - International normalised ratio increased [Recovered/Resolved]
  - Angiodysplasia [Unknown]
  - Ulcer haemorrhage [Unknown]
